FAERS Safety Report 6725191 (Version 3)
Quarter: 2013Q3

REPORT INFORMATION
  Report Type: Report from Study
  Country: US (occurrence: US)
  Receive Date: 20080812
  Receipt Date: 20130808
  Transmission Date: 20140515
  Serious: Yes (Hospitalization, Disabling, Other)
  Sender: FDA-Public Use
  Company Number: US-ELI_LILLY_AND_COMPANY-US200807006220

PATIENT
  Sex: Female

DRUGS (7)
  1. TERIPARATIDE [Suspect]
     Indication: OSTEOPOROSIS
     Dosage: UNK, UNK
     Dates: end: 2006
  2. TERIPARATIDE [Suspect]
     Dosage: 20 UG, UNK
     Dates: start: 2006
  3. SYNTHROID [Concomitant]
  4. SKELAXIN [Concomitant]
  5. VALIUM [Concomitant]
  6. TOPAMAX [Concomitant]
  7. CALCIUM [Concomitant]

REACTIONS (17)
  - Lumbar vertebral fracture [Recovered/Resolved]
  - Thoracic vertebral fracture [Recovered/Resolved]
  - Bedridden [Recovered/Resolved]
  - Thoracic vertebral fracture [Recovered/Resolved]
  - Spinal fracture [Unknown]
  - Pain [Recovering/Resolving]
  - Spinal deformity [Unknown]
  - Body height decreased [Unknown]
  - Vitamin D decreased [Unknown]
  - Malaise [Recovered/Resolved]
  - Asthenia [Unknown]
  - Nerve injury [Not Recovered/Not Resolved]
  - Impaired driving ability [Not Recovered/Not Resolved]
  - Gait disturbance [Not Recovered/Not Resolved]
  - Hearing impaired [Not Recovered/Not Resolved]
  - Weight decreased [Unknown]
  - Muscular weakness [Unknown]
